FAERS Safety Report 6199751-0 (Version None)
Quarter: 2009Q2

REPORT INFORMATION
  Report Type: 
  Country: None (occurrence: None)
  Receive Date: 20090522
  Receipt Date: 20090515
  Transmission Date: 20091009
  Serious: Yes (Hospitalization, Other)
  Sender: FDA-Public Use
  Company Number: US-ABBOTT-09P-163-0573791-00

PATIENT
  Age: 73 Year
  Sex: Female

DRUGS (12)
  1. WARFARIN SODIUM [Suspect]
     Indication: ANTICOAGULANT THERAPY
     Route: 048
  2. OXYGEN [Concomitant]
     Indication: MENINGITIS PNEUMOCOCCAL
     Dosage: NOT REPORTED
  3. VITAMIN K [Concomitant]
     Indication: VITAMIN SUPPLEMENTATION
     Route: 042
  4. VITAMIN K [Concomitant]
     Route: 042
  5. HYDRATION THERAPY [Concomitant]
     Indication: MENINGITIS PNEUMOCOCCAL
     Dosage: NOT REPORTED
  6. ANTIBIOTICS [Concomitant]
     Indication: MENINGITIS PNEUMOCOCCAL
     Dosage: NOT REPORTED
  7. HEPARIN [Concomitant]
     Indication: MENINGITIS PNEUMOCOCCAL
     Route: 042
  8. HEPARIN [Concomitant]
     Route: 042
  9. HEPARIN [Concomitant]
     Route: 042
  10. FRESH FROZEN PLASMA [Concomitant]
     Indication: TRANSFUSION
  11. FRESH FROZEN PLASMA [Concomitant]
  12. HEPARIN [Concomitant]
     Indication: THROMBOSIS PROPHYLAXIS
     Route: 058

REACTIONS (1)
  - SKIN NECROSIS [None]
